FAERS Safety Report 5162644-1 (Version None)
Quarter: 2006Q4

REPORT INFORMATION
  Report Type: 
  Country: None (occurrence: None)
  Receive Date: 20061201
  Receipt Date: 20061120
  Transmission Date: 20070319
  Serious: Yes (Other)
  Sender: FDA-Public Use
  Company Number: PHNU2006DE03851

PATIENT
  Age: 53 Year
  Sex: Male

DRUGS (1)
  1. LEPONEX [Suspect]
     Dosage: UP TO 250 MG/DAY
     Route: 048
     Dates: start: 20020101

REACTIONS (2)
  - PLEURAL EFFUSION [None]
  - PLEURISY [None]
